FAERS Safety Report 18505612 (Version 2)
Quarter: 2021Q1

REPORT INFORMATION
  Report Type: Spontaneous
  Country: JP (occurrence: JP)
  Receive Date: 20201116
  Receipt Date: 20210210
  Transmission Date: 20210419
  Serious: Yes (Other)
  Sender: FDA-Public Use
  Company Number: NVSJ2020JP011724

PATIENT
  Age: 50 Year
  Sex: Female

DRUGS (6)
  1. GRACEPTOR [Suspect]
     Active Substance: TACROLIMUS
     Indication: RENAL AND PANCREAS TRANSPLANT
     Dosage: UNK
     Route: 065
  2. PROGRAF [Concomitant]
     Active Substance: TACROLIMUS
     Indication: RENAL AND PANCREAS TRANSPLANT
     Dosage: UNK
     Route: 065
  3. CELLCEPT [Suspect]
     Active Substance: MYCOPHENOLATE MOFETIL\MYCOPHENOLATE MOFETIL HYDROCHLORIDE
     Indication: RENAL AND PANCREAS TRANSPLANT
     Dosage: UNK
     Route: 065
  4. PREDONINE [Suspect]
     Active Substance: PREDNISOLONE
     Indication: RENAL AND PANCREAS TRANSPLANT
     Dosage: UNK
     Route: 065
  5. SIMULECT [Suspect]
     Active Substance: BASILIXIMAB
     Indication: RENAL AND PANCREAS TRANSPLANT
     Dosage: UNK
     Route: 042
  6. HEPARINOID [Concomitant]
     Active Substance: CHONDROITIN SULFATE (BOVINE)
     Indication: RENAL AND PANCREAS TRANSPLANT
     Dosage: UNK
     Route: 065

REACTIONS (14)
  - Cytomegalovirus viraemia [Unknown]
  - Inflammation [Unknown]
  - Pancreatic necrosis [Unknown]
  - Post procedural fever [Unknown]
  - Pelvic mass [Unknown]
  - Product use in unapproved indication [Unknown]
  - Dehiscence [Unknown]
  - Amylase increased [Unknown]
  - Arteriovenous graft site necrosis [Unknown]
  - Pelvic haematoma obstetric [Unknown]
  - Arteriovenous graft site haematoma [Unknown]
  - Post procedural persistent drain fluid [Unknown]
  - Urine output decreased [Unknown]
  - Pancreatic leak [Unknown]
